FAERS Safety Report 4507252-8 (Version None)
Quarter: 2004Q4

REPORT INFORMATION
  Report Type: 
  Country: None (occurrence: None)
  Receive Date: 20041118
  Receipt Date: 20041103
  Transmission Date: 20050328
  Serious: Yes (Hospitalization)
  Sender: FDA-Public Use
  Company Number: THYM-10349

PATIENT
  Age: 38 Year
  Sex: Female
  Weight: 100 kg

DRUGS (18)
  1. THYMOGLOBULIN [Suspect]
     Indication: RENAL TUBULAR NECROSIS
     Dosage: 150 MG QD IV
     Route: 042
     Dates: start: 20041001, end: 20041001
  2. THYMOGLOBULIN [Suspect]
     Indication: RENAL TUBULAR NECROSIS
     Dosage: 75 MG QD IV
     Route: 042
     Dates: start: 20041002, end: 20041011
  3. SIMULECT [Concomitant]
  4. CELLCEPT [Concomitant]
  5. PROGRAF [Concomitant]
  6. HYDROMORPHONE [Concomitant]
  7. PROTONIX [Concomitant]
  8. PHOSLO [Concomitant]
  9. PREDNISONE [Concomitant]
  10. PROMETHAZINE [Concomitant]
  11. DIPHENHYDRAMINE [Concomitant]
  12. SODIUM BICARBONATE [Concomitant]
  13. NORCO [Concomitant]
  14. AMBIEN [Concomitant]
  15. FENTANYL [Concomitant]
  16. DILAUDID [Concomitant]
  17. PLAVIX [Concomitant]
  18. MS CONTIN [Concomitant]

REACTIONS (6)
  - FULL BLOOD COUNT DECREASED [None]
  - HAEMATOCRIT DECREASED [None]
  - INFUSION RELATED REACTION [None]
  - KIDNEY TRANSPLANT REJECTION [None]
  - PLATELET COUNT DECREASED [None]
  - SERUM SICKNESS [None]
